FAERS Safety Report 5659170-X (Version None)
Quarter: 2008Q1

REPORT INFORMATION
  Report Type: 
  Country: None (occurrence: None)
  Receive Date: 20080311
  Receipt Date: 20070530
  Transmission Date: 20080703
  Serious: No
  Sender: FDA-Public Use
  Company Number: US-BAYER-200711736BCC

PATIENT
  Age: 14 Year
  Sex: Female
  Weight: 50 kg

DRUGS (2)
  1. MIDOL [Suspect]
     Indication: MUSCLE SPASMS
     Dosage: UNIT DOSE: 220 MG
     Route: 048
     Dates: start: 20070530
  2. ANTIDEPRESSANT [Concomitant]

REACTIONS (1)
  - NO ADVERSE EVENT [None]
